FAERS Safety Report 8230716 (Version 2)
Quarter: 2012Q4

REPORT INFORMATION
  Report Type: 
  Country: US (occurrence: US)
  Receive Date: 20111106
  Receipt Date: 20121107
  Transmission Date: 20130627
  Serious: No
  Sender: FDA-Public Use
  Company Number: US-AMGEN-USASP2011043386

PATIENT
  Age: 31 Year
  Sex: Female
  Weight: 134.69 kg

DRUGS (3)
  1. ENBREL [Suspect]
     Indication: PSORIASIS
     Dosage: 50 mg, 2 times/wk
     Route: 058
     Dates: start: 20110607, end: 20120213
  2. MVI [Concomitant]
     Dosage: UNK UNK, qd
     Route: 048
  3. TRIAMCINOLONE [Concomitant]
     Dosage: UNK UNK, prn
     Route: 061

REACTIONS (3)
  - Postoperative wound complication [Not Recovered/Not Resolved]
  - Postoperative wound infection [Not Recovered/Not Resolved]
  - Folliculitis [Not Recovered/Not Resolved]
